FAERS Safety Report 9355904 (Version 1)
Quarter: 2013Q2

REPORT INFORMATION
  Report Type: Spontaneous
  Country: IN (occurrence: IN)
  Receive Date: 20130619
  Receipt Date: 20130619
  Transmission Date: 20140414
  Serious: Yes (Other)
  Sender: FDA-Public Use
  Company Number: IN-MYLANLABS-2013S1012450

PATIENT
  Age: 53 Year
  Sex: Male

DRUGS (4)
  1. ESCITALOPRAM [Suspect]
     Route: 065
  2. PREGABALIN [Suspect]
     Route: 065
  3. AMITRIPTYLINE [Suspect]
     Route: 065
  4. CARBAMAZEPINE [Suspect]
     Route: 065

REACTIONS (4)
  - Polymedication [Recovering/Resolving]
  - Dementia [Recovering/Resolving]
  - Normal pressure hydrocephalus [Recovering/Resolving]
  - Gait disturbance [Recovering/Resolving]
